FAERS Safety Report 4838967-X (Version None)
Quarter: 2005Q4

REPORT INFORMATION
  Report Type: 
  Country: None (occurrence: None)
  Receive Date: 20051123
  Receipt Date: 20051123
  Transmission Date: 20060501
  Serious: Yes (Other)
  Sender: FDA-Public Use
  Company Number: None

PATIENT
  Age: 65 Year
  Sex: Female

DRUGS (1)
  1. NALBUPHINE [Suspect]
     Indication: PRURITUS
     Dosage: 10MG   OTO   IV
     Route: 042
     Dates: start: 20051026, end: 20051026

REACTIONS (2)
  - MUSCLE RIGIDITY [None]
  - TREMOR [None]
